FAERS Safety Report 16311097 (Version 15)
Quarter: 2020Q2

REPORT INFORMATION
  Report Type: Spontaneous
  Country: US (occurrence: US)
  Receive Date: 20190514
  Receipt Date: 20200501
  Transmission Date: 20200713
  Serious: Yes (Death, Hospitalization, Other)
  Sender: FDA-Public Use
  Company Number: US-GLAXOSMITHKLINE-US2019AMR084950

PATIENT
  Sex: Female

DRUGS (25)
  1. FLOLAN [Suspect]
     Active Substance: EPOPROSTENOL SODIUM
     Indication: PULMONARY ARTERIAL HYPERTENSION
     Dosage: 12 NG/KG/MIN, CO
     Route: 042
     Dates: start: 20190506
  2. FLOLAN DILUENT PH 12 [Suspect]
     Active Substance: GLYCINE\MANNITOL\SODIUM CHLORIDE
     Indication: PULMONARY ARTERIAL HYPERTENSION
     Dosage: UNK
     Route: 042
     Dates: start: 20190506
  3. FLOLAN DILUENT PH 12 [Suspect]
     Active Substance: GLYCINE\MANNITOL\SODIUM CHLORIDE
     Dosage: UNK
     Route: 042
     Dates: start: 20190506
  4. FLOLAN [Suspect]
     Active Substance: EPOPROSTENOL SODIUM
     Dosage: 12 NG/KG/MIN, CO
     Route: 042
     Dates: start: 20190506
  5. FLOLAN [Suspect]
     Active Substance: EPOPROSTENOL SODIUM
     Dosage: 22 NG/KG/MIN, CO
     Route: 042
     Dates: start: 20190506
  6. ADEMPAS [Suspect]
     Active Substance: RIOCIGUAT
     Indication: PRODUCT USED FOR UNKNOWN INDICATION
     Dosage: UNK
     Route: 065
  7. COUMADIN [Concomitant]
     Active Substance: WARFARIN SODIUM
     Indication: PRODUCT USED FOR UNKNOWN INDICATION
     Dosage: UNK
     Route: 065
  8. FLOLAN [Suspect]
     Active Substance: EPOPROSTENOL SODIUM
     Dosage: 23 NG/KG/MIN, CO
     Route: 042
     Dates: start: 20190506
  9. FLOLAN DILUENT PH 12 [Suspect]
     Active Substance: GLYCINE\MANNITOL\SODIUM CHLORIDE
     Dosage: UNK
     Route: 042
     Dates: start: 20190506
  10. FLOLAN [Suspect]
     Active Substance: EPOPROSTENOL SODIUM
     Dosage: 20 NG/KG/MIN, CO
     Route: 042
     Dates: start: 20190506
  11. FLOLAN [Suspect]
     Active Substance: EPOPROSTENOL SODIUM
     Dosage: 22 NG/KG/MIN, CO
     Route: 042
     Dates: start: 20190506
  12. FLOLAN DILUENT PH 12 [Suspect]
     Active Substance: GLYCINE\MANNITOL\SODIUM CHLORIDE
     Dosage: UNK
     Route: 042
  13. FLOLAN DILUENT PH 12 [Suspect]
     Active Substance: GLYCINE\MANNITOL\SODIUM CHLORIDE
     Dosage: UNK
     Route: 042
  14. ADEMPAS [Suspect]
     Active Substance: RIOCIGUAT
     Dosage: 2 MG, UNK
     Route: 065
  15. FLOLAN [Suspect]
     Active Substance: EPOPROSTENOL SODIUM
     Dosage: 18 NG/KG/MIN, CO
     Route: 042
     Dates: start: 20190506
  16. FLOLAN DILUENT PH 12 [Suspect]
     Active Substance: GLYCINE\MANNITOL\SODIUM CHLORIDE
     Dosage: UNK
     Route: 042
     Dates: start: 20190506
  17. ADEMPAS [Suspect]
     Active Substance: RIOCIGUAT
     Dosage: 2.5 MG, TID
     Route: 065
  18. FLOLAN [Suspect]
     Active Substance: EPOPROSTENOL SODIUM
     Dosage: 22 NG/KG/MIN, CO
     Route: 042
     Dates: start: 20190506
  19. FLOLAN [Suspect]
     Active Substance: EPOPROSTENOL SODIUM
     Dosage: 18 NG/KG/MIN, CO
     Route: 042
     Dates: start: 20190506
  20. FLOLAN DILUENT PH 12 [Suspect]
     Active Substance: GLYCINE\MANNITOL\SODIUM CHLORIDE
     Dosage: UNK
     Route: 042
     Dates: start: 20190506
  21. OPSUMIT [Concomitant]
     Active Substance: MACITENTAN
     Indication: PRODUCT USED FOR UNKNOWN INDICATION
     Dosage: UNK
     Route: 065
  22. FLOLAN DILUENT PH 12 [Suspect]
     Active Substance: GLYCINE\MANNITOL\SODIUM CHLORIDE
     Dosage: UNK
     Route: 042
     Dates: start: 20190605
  23. FLOLAN [Suspect]
     Active Substance: EPOPROSTENOL SODIUM
     Dosage: 22 NG/KG/MIN, CO
     Route: 042
     Dates: start: 20190506
  24. FLOLAN DILUENT PH 12 [Suspect]
     Active Substance: GLYCINE\MANNITOL\SODIUM CHLORIDE
     Dosage: UNK
     Route: 042
     Dates: start: 20190506
  25. UPTRAVI [Concomitant]
     Active Substance: SELEXIPAG
     Indication: PRODUCT USED FOR UNKNOWN INDICATION
     Dosage: UNK
     Route: 065

REACTIONS (32)
  - Diarrhoea [Unknown]
  - Condition aggravated [Unknown]
  - Lung transplant [Unknown]
  - Sepsis [Unknown]
  - Device related infection [Unknown]
  - Malaise [Unknown]
  - Catheter placement [Unknown]
  - Hypoxia [Unknown]
  - Complication associated with device [Unknown]
  - Seasonal allergy [Unknown]
  - Cardiac failure [Unknown]
  - Hospitalisation [Unknown]
  - Central venous catheter removal [Unknown]
  - Respiratory syncytial virus infection [Unknown]
  - Right ventricular failure [Unknown]
  - Device occlusion [Unknown]
  - Abdominal pain upper [Unknown]
  - Wheezing [Unknown]
  - Fluid retention [Unknown]
  - Weight decreased [Unknown]
  - Drug intolerance [Unknown]
  - Intracardiac thrombus [Fatal]
  - Transplant [Unknown]
  - Pain in jaw [Unknown]
  - Rash [Recovered/Resolved]
  - Catheterisation cardiac [Unknown]
  - Adverse drug reaction [Unknown]
  - Vomiting [Unknown]
  - Dyspnoea [Unknown]
  - Cellulitis [Unknown]
  - Pyrexia [Unknown]
  - Asthenia [Unknown]
